FAERS Safety Report 7267286-X (Version None)
Quarter: 2011Q1

REPORT INFORMATION
  Report Type: 
  Country: None (occurrence: None)
  Receive Date: 20110201
  Receipt Date: 20110126
  Transmission Date: 20110831
  Serious: Yes (Hospitalization)
  Sender: FDA-Public Use
  Company Number: US-KINGPHARMUSA00001-K201001418

PATIENT
  Sex: Female
  Weight: 87.075 kg

DRUGS (12)
  1. ASA [Concomitant]
  2. KLONOPIN [Concomitant]
  3. EMBEDA [Suspect]
     Dosage: 200 MG, BID
     Dates: start: 20101015, end: 20001019
  4. EMBEDA [Suspect]
     Dosage: 230 MG, BID
     Dates: start: 20101020, end: 20101024
  5. EMBEDA [Suspect]
     Dosage: 180 MG, BID
     Dates: start: 20101011, end: 20101014
  6. METHADONE [Concomitant]
  7. LOTREL [Concomitant]
  8. CELEXA [Concomitant]
  9. EMBEDA [Suspect]
     Indication: PAIN
     Dosage: 200 MG, BID
     Route: 048
     Dates: start: 20101025
  10. PLAVIX [Concomitant]
  11. RESTORIL [Concomitant]
  12. COREG [Concomitant]

REACTIONS (2)
  - DYSPNOEA [None]
  - TACHYCARDIA [None]
